FAERS Safety Report 9173326 (Version 1)
Quarter: 2013Q1

REPORT INFORMATION
  Report Type: Spontaneous
  Country: GB (occurrence: None)
  Receive Date: 20130314
  Receipt Date: 20130314
  Transmission Date: 20140127
  Serious: Yes (Other)
  Sender: FDA-Public Use
  Company Number: 2013HINREG0028

PATIENT
  Age: 31 Year
  Sex: Male

DRUGS (5)
  1. LEVETIRACETAM [Suspect]
     Indication: EPILEPSY
     Route: 048
     Dates: start: 2009
  2. LEVETIRACETAM [Suspect]
     Indication: SCHIZOPHRENIA
     Route: 048
     Dates: start: 2009
  3. LEVETIRACETAM [Suspect]
     Indication: AFFECTIVE DISORDER
     Route: 048
     Dates: start: 2009
  4. CLOZARIL [Suspect]
  5. VALPROATE SODIUM [Suspect]

REACTIONS (5)
  - Anaemia [None]
  - Epilepsy [None]
  - Hyperpyrexia [None]
  - Neutropenia [None]
  - White blood cell count decreased [None]
